FAERS Safety Report 18727453 (Version 1)
Quarter: 2021Q1

REPORT INFORMATION
  Report Type: Spontaneous
  Country: US (occurrence: US)
  Receive Date: 20210111
  Receipt Date: 20210111
  Transmission Date: 20210419
  Serious: Yes (Hospitalization)
  Sender: FDA-Public Use
  Company Number: US-ELI_LILLY_AND_COMPANY-US202101001214

PATIENT
  Age: 72 Year
  Sex: Male
  Weight: 76.19 kg

DRUGS (1)
  1. BAMLANIVIMAB 700MG [Suspect]
     Active Substance: BAMLANIVIMAB
     Indication: COVID-19
     Dosage: 700 MG, SINGLE
     Route: 041
     Dates: start: 20201224, end: 20201224

REACTIONS (5)
  - Acute respiratory failure [Unknown]
  - Chest pain [Unknown]
  - Dysuria [Unknown]
  - Pyuria [Unknown]
  - Pneumonia [Unknown]

NARRATIVE: CASE EVENT DATE: 20201224
